FAERS Safety Report 4555998-8 (Version None)
Quarter: 2005Q1

REPORT INFORMATION
  Report Type: 
  Country: None (occurrence: None)
  Receive Date: 20050118
  Receipt Date: 20041112
  Transmission Date: 20050727
  Serious: No
  Sender: FDA-Public Use
  Company Number: A03200403833

PATIENT
  Sex: Female

DRUGS (1)
  1. UROXATRAL [Suspect]
     Dosage: ORAL
     Route: 048

REACTIONS (3)
  - ARTHRALGIA [None]
  - BLADDER PAIN [None]
  - INFLUENZA LIKE ILLNESS [None]
